FAERS Safety Report 13698860 (Version 2)
Quarter: 2017Q2

REPORT INFORMATION
  Report Type: Report from Study
  Country: JP (occurrence: JP)
  Receive Date: 20170628
  Receipt Date: 20170628
  Transmission Date: 20170830
  Serious: Yes (Other)
  Sender: FDA-Public Use
  Company Number: JP-TEVA-781286ROM

PATIENT
  Age: 88 Year
  Sex: Male

DRUGS (2)
  1. SHAKUYAKUKANZOTO [Suspect]
     Active Substance: HERBALS
     Dosage: CONTAINING 6G LICORICE PER DAY AS AN INGREDIENT
     Route: 065
  2. TELMISARTAN. [Suspect]
     Active Substance: TELMISARTAN
     Dosage: 40 MG/DAY
     Route: 065

REACTIONS (1)
  - Hypokalaemia [Unknown]
